FAERS Safety Report 9152850 (Version 3)
Quarter: 2014Q2

REPORT INFORMATION
  Report Type: Report from Study
  Country: BR (occurrence: BR)
  Receive Date: 20130309
  Receipt Date: 20140521
  Transmission Date: 20141212
  Serious: Yes (Hospitalization)
  Sender: FDA-Public Use
  Company Number: BR-US-EMD SERONO, INC.-7197015

PATIENT
  Age: 31 Year
  Sex: Female

DRUGS (2)
  1. REBIF [Suspect]
     Indication: MULTIPLE SCLEROSIS
     Route: 058
     Dates: start: 20080423, end: 20111101
  2. REBIF [Suspect]
     Route: 058

REACTIONS (5)
  - Foetal heart rate abnormal [Unknown]
  - Abortion spontaneous [Unknown]
  - Pyrexia [Unknown]
  - Chills [Unknown]
  - Maternal exposure during pregnancy [Recovered/Resolved]
